FAERS Safety Report 7567867-X (Version None)
Quarter: 2011Q2

REPORT INFORMATION
  Report Type: 
  Country: None (occurrence: None)
  Receive Date: 20110623
  Receipt Date: 20110615
  Transmission Date: 20111010
  Serious: Yes (Hospitalization, Other)
  Sender: FDA-Public Use
  Company Number: PL-ASTELLAS-2011EU003693

PATIENT
  Sex: Male
  Weight: 18 kg

DRUGS (4)
  1. TACROLIMUS [Suspect]
     Indication: DERMATITIS ATOPIC
     Dosage: 0.03 %, WEEKLY
     Route: 065
     Dates: start: 20100804, end: 20110301
  2. PREDNISONE [Concomitant]
     Dosage: UNK
     Route: 048
  3. FLUTICASONE PROPIONATE [Concomitant]
     Indication: DIAGNOSTIC PROCEDURE
     Dosage: UNK
     Route: 055
     Dates: start: 20110518
  4. PIMECROLIMUS [Concomitant]
     Dosage: UNK
     Route: 065
     Dates: start: 20070815

REACTIONS (4)
  - UPPER RESPIRATORY TRACT INFECTION [None]
  - VOCAL CORD THICKENING [None]
  - DIARRHOEA [None]
  - VOCAL CORD CYST [None]
